FAERS Safety Report 13071256 (Version 1)
Quarter: 2016Q4

REPORT INFORMATION
  Report Type: Spontaneous
  Country: US (occurrence: US)
  Receive Date: 20161229
  Receipt Date: 20161229
  Transmission Date: 20170207
  Serious: Yes (Hospitalization, Other)
  Sender: FDA-Public Use
  Company Number: US-009507513-1612USA009774

PATIENT
  Age: 77 Year
  Sex: Female
  Weight: 43.7 kg

DRUGS (3)
  1. IBRANCE [Suspect]
     Active Substance: PALBOCICLIB
     Dosage: 125 MG, DAILY
     Route: 048
     Dates: end: 2016
  2. LIDOCAINE HYDROCHLORIDE. [Suspect]
     Active Substance: LIDOCAINE HYDROCHLORIDE
     Indication: MUSCULOSKELETAL PAIN
     Dosage: UNK
     Route: 008
     Dates: start: 20161103, end: 20161103
  3. DEXAMETHASONE ACETATE [Suspect]
     Active Substance: DEXAMETHASONE ACETATE
     Indication: MUSCULOSKELETAL PAIN
     Dosage: UNK
     Route: 008
     Dates: start: 20161103, end: 20161103

REACTIONS (5)
  - Seizure [Not Recovered/Not Resolved]
  - Nausea [Unknown]
  - Vomiting [Unknown]
  - Dyskinesia [Unknown]
  - Confusional state [Unknown]

NARRATIVE: CASE EVENT DATE: 2016
